FAERS Safety Report 20637563 (Version 2)
Quarter: 2022Q3

REPORT INFORMATION
  Report Type: Report from Study
  Country: US (occurrence: US)
  Receive Date: 20220325
  Receipt Date: 20220701
  Transmission Date: 20221026
  Serious: Yes (Other)
  Sender: FDA-Public Use
  Company Number: US-JAZZ-2022-US-008962

PATIENT
  Sex: Female

DRUGS (7)
  1. SOLRIAMFETOL [Suspect]
     Active Substance: SOLRIAMFETOL
     Indication: Product used for unknown indication
     Dosage: UNK, QD
     Route: 048
  2. NUVARING [Concomitant]
     Active Substance: ETHINYL ESTRADIOL\ETONOGESTREL
  3. FLUTICASONE PROPIONATE [Concomitant]
     Active Substance: FLUTICASONE PROPIONATE
     Dosage: UNK, QD
     Route: 045
  4. CROMOLYN SODIUM [Concomitant]
     Active Substance: CROMOLYN SODIUM
     Dosage: UNK, TID
     Route: 045
  5. FLUOXETINE HYDROCHLORIDE [Concomitant]
     Active Substance: FLUOXETINE HYDROCHLORIDE
     Dosage: UNK, QD
     Route: 048
  6. ARMODAFINIL [Concomitant]
     Active Substance: ARMODAFINIL
     Dosage: 250 MILLIGRAM TABLET, 1 TABLET DAILY
     Route: 048
  7. ARMODAFINIL [Concomitant]
     Active Substance: ARMODAFINIL
     Dosage: 50 MILLIGRAM TABLET, 1 TABLET DAILY
     Route: 048

REACTIONS (6)
  - Facial paralysis [Unknown]
  - Fatigue [Unknown]
  - Feeling abnormal [Unknown]
  - Decreased appetite [Unknown]
  - Hypoaesthesia [Unknown]
  - Drug ineffective [Unknown]
